FAERS Safety Report 5973442-0 (Version None)
Quarter: 2008Q4

REPORT INFORMATION
  Report Type: 
  Country: None (occurrence: None)
  Receive Date: 20081201
  Receipt Date: 20080115
  Transmission Date: 20090506
  Serious: No
  Sender: FDA-Public Use
  Company Number: US-AMGEN-KDL260854

PATIENT
  Sex: Female

DRUGS (3)
  1. ENBREL [Suspect]
     Indication: RHEUMATOID ARTHRITIS
     Route: 058
     Dates: start: 20070903
  2. PLAQUENIL [Concomitant]
     Route: 048
     Dates: start: 20060101
  3. METHOTREXATE [Concomitant]
     Route: 058
     Dates: start: 20070101

REACTIONS (5)
  - DIZZINESS [None]
  - FEELING HOT [None]
  - HEARING IMPAIRED [None]
  - HYPERHIDROSIS [None]
  - PRESYNCOPE [None]
